FAERS Safety Report 15738618 (Version 5)
Quarter: 2019Q1

REPORT INFORMATION
  Report Type: Spontaneous
  Country: US (occurrence: US)
  Receive Date: 20181219
  Receipt Date: 20190218
  Transmission Date: 20190417
  Serious: Yes (Hospitalization)
  Sender: FDA-Public Use
  Company Number: US-PFIZER INC-2018514437

PATIENT
  Age: 56 Year
  Sex: Male
  Weight: 75.28 kg

DRUGS (19)
  1. CLONAZEPAM. [Concomitant]
     Active Substance: CLONAZEPAM
     Dosage: 2 MG, 4X/DAY
     Route: 048
     Dates: start: 2017
  2. ZIPRASIDONE HCL [Suspect]
     Active Substance: ZIPRASIDONE HYDROCHLORIDE
     Indication: PARANOIA
     Dosage: 80 MG, 3X/DAY
     Route: 048
     Dates: start: 2011
  3. CLONAZEPAM. [Concomitant]
     Active Substance: CLONAZEPAM
     Dosage: 2 MG, 3X/DAY
     Route: 048
     Dates: start: 2011
  4. ABILIFY [Concomitant]
     Active Substance: ARIPIPRAZOLE
     Indication: HALLUCINATION
     Dosage: UNK
     Dates: start: 2004
  5. LAMOTRIGINE. [Concomitant]
     Active Substance: LAMOTRIGINE
     Indication: INSOMNIA
  6. LAMOTRIGINE. [Concomitant]
     Active Substance: LAMOTRIGINE
     Indication: SLEEP DISORDER
  7. ZIPRASIDONE HCL [Suspect]
     Active Substance: ZIPRASIDONE HYDROCHLORIDE
     Indication: HALLUCINATION, AUDITORY
  8. ZIPRASIDONE HCL [Suspect]
     Active Substance: ZIPRASIDONE HYDROCHLORIDE
     Indication: DELUSION
     Dosage: 80 MG, 3X/DAY
     Route: 048
     Dates: start: 2016
  9. HALOPERIDOL. [Concomitant]
     Active Substance: HALOPERIDOL
     Dosage: 5 MG, 4X/DAY
     Dates: start: 2017
  10. LAMOTRIGINE. [Concomitant]
     Active Substance: LAMOTRIGINE
     Indication: HALLUCINATION
  11. SERTRALINE [Concomitant]
     Active Substance: SERTRALINE HYDROCHLORIDE
     Indication: DEPRESSION
     Dosage: 200 MG, 1X/DAY (2 ONCE A DAY IN THE MORNING)
     Route: 048
     Dates: start: 2011
  12. ZIPRASIDONE HCL [Suspect]
     Active Substance: ZIPRASIDONE HYDROCHLORIDE
     Indication: INSOMNIA
     Dosage: 85 MG, 3X/DAY
     Route: 048
  13. ZIPRASIDONE HCL [Suspect]
     Active Substance: ZIPRASIDONE HYDROCHLORIDE
     Indication: SCHIZOPHRENIA
  14. LAMOTRIGINE. [Concomitant]
     Active Substance: LAMOTRIGINE
     Indication: PARANOIA
     Dosage: 200 MG, 1X/DAY (AT NIGHT)
     Dates: start: 2017
  15. ABILIFY [Concomitant]
     Active Substance: ARIPIPRAZOLE
     Indication: PARANOIA
  16. ZIPRASIDONE HCL [Suspect]
     Active Substance: ZIPRASIDONE HYDROCHLORIDE
     Indication: HALLUCINATION
     Dosage: UNK, 2X/DAY
  17. LAMOTRIGINE. [Concomitant]
     Active Substance: LAMOTRIGINE
     Indication: AFFECTIVE DISORDER
  18. HALOPERIDOL. [Concomitant]
     Active Substance: HALOPERIDOL
     Indication: ANXIETY
     Dosage: 5 MG, 4X/DAY
     Dates: start: 2011
  19. CLONAZEPAM. [Concomitant]
     Active Substance: CLONAZEPAM
     Indication: ANXIETY
     Dosage: 1 MG, 4X/DAY
     Route: 048

REACTIONS (2)
  - Overdose [Not Recovered/Not Resolved]
  - Drug effect incomplete [Not Recovered/Not Resolved]

NARRATIVE: CASE EVENT DATE: 201105
